FAERS Safety Report 19394133 (Version 1)
Quarter: 2021Q2

REPORT INFORMATION
  Report Type: Spontaneous
  Country: US (occurrence: US)
  Receive Date: 20210608
  Receipt Date: 20210608
  Transmission Date: 20210717
  Serious: No
  Sender: FDA-Public Use
  Company Number: None

PATIENT
  Age: 27 Year
  Sex: Female
  Weight: 62.1 kg

DRUGS (3)
  1. VYVANSE [Concomitant]
     Active Substance: LISDEXAMFETAMINE DIMESYLATE
  2. DEXTROAMPHET SACCHARAT, AMPHET ASPARTATE, DEXTROAMPHET SULFATE AND AMPHET SULFAT [Suspect]
     Active Substance: AMPHETAMINE ASPARTATE\AMPHETAMINE SULFATE\DEXTROAMPHETAMINE SACCHARATE\DEXTROAMPHETAMINE SULFATE
     Indication: ATTENTION DEFICIT HYPERACTIVITY DISORDER
     Dosage: ?          QUANTITY:30 TABLET(S);?
     Route: 048
     Dates: start: 20210604, end: 20210608
  3. GABAPENTIN. [Concomitant]
     Active Substance: GABAPENTIN

REACTIONS (7)
  - Drug ineffective [None]
  - Headache [None]
  - Product substitution issue [None]
  - Dizziness [None]
  - Fatigue [None]
  - Somnolence [None]
  - Product quality issue [None]

NARRATIVE: CASE EVENT DATE: 20210605
